FAERS Safety Report 6093340-4 (Version None)
Quarter: 2009Q1

REPORT INFORMATION
  Report Type: 
  Country: None (occurrence: None)
  Receive Date: 20090226
  Receipt Date: 20080107
  Transmission Date: 20090719
  Serious: No
  Sender: FDA-Public Use
  Company Number: A0701686A

PATIENT
  Age: 51 Year
  Sex: Male

DRUGS (4)
  1. ZIAGEN [Suspect]
     Indication: HIV INFECTION
     Dosage: 300MG TWICE PER DAY
     Route: 048
     Dates: start: 20071117
  2. FLUOXETINE [Concomitant]
  3. LAMICTAL [Concomitant]
  4. COMBIVIR [Concomitant]

REACTIONS (2)
  - PRURITUS [None]
  - RASH [None]
